FAERS Safety Report 21664132 (Version 1)
Quarter: 2022Q4

REPORT INFORMATION
  Report Type: Spontaneous
  Country: CN (occurrence: None)
  Receive Date: 20221130
  Receipt Date: 20221130
  Transmission Date: 20230113
  Serious: Yes (Death, Other)
  Sender: FDA-Public Use
  Company Number: 2022A386883

PATIENT
  Age: 46 Year
  Sex: Female

DRUGS (8)
  1. OSIMERTINIB [Suspect]
     Active Substance: OSIMERTINIB
     Indication: EGFR gene mutation
     Dosage: 80 MG ONCE DAILY
     Route: 048
     Dates: start: 201801
  2. OSIMERTINIB [Suspect]
     Active Substance: OSIMERTINIB
     Indication: Lung adenocarcinoma
     Dosage: 80 MG ONCE DAILY
     Route: 048
     Dates: start: 201801
  3. OSIMERTINIB [Suspect]
     Active Substance: OSIMERTINIB
     Indication: EGFR gene mutation
     Dosage: 80 MG ONCE DAILY
     Route: 048
  4. OSIMERTINIB [Suspect]
     Active Substance: OSIMERTINIB
     Indication: Lung adenocarcinoma
     Dosage: 80 MG ONCE DAILY
     Route: 048
  5. GEFITINIB [Suspect]
     Active Substance: GEFITINIB
     Indication: EGFR gene mutation
     Dosage: 250 MG ONCE DAILY
     Route: 048
  6. GEFITINIB [Suspect]
     Active Substance: GEFITINIB
     Indication: Lung adenocarcinoma
     Dosage: 250 MG ONCE DAILY
     Route: 048
  7. VEMURAFENIB [Concomitant]
     Active Substance: VEMURAFENIB
     Dosage: 480 MG TWICE DAILY
     Route: 065
     Dates: start: 20181017
  8. VEMURAFENIB [Concomitant]
     Active Substance: VEMURAFENIB
     Dosage: 240 MG TWICE DAILY
     Route: 065

REACTIONS (5)
  - Malignant neoplasm progression [Fatal]
  - Palpitations [Unknown]
  - Fatigue [Unknown]
  - BRAF gene mutation [Unknown]
  - Drug resistance [Unknown]
